FAERS Safety Report 15251113 (Version 2)
Quarter: 2018Q3

REPORT INFORMATION
  Report Type: Report from Study
  Country: US (occurrence: US)
  Receive Date: 20180807
  Receipt Date: 20180925
  Transmission Date: 20181010
  Serious: Yes (Death, Other)
  Sender: FDA-Public Use
  Company Number: US-ASTRAZENECA-2018SE99003

PATIENT
  Age: 20539 Day
  Sex: Male
  Weight: 147.9 kg

DRUGS (1)
  1. FASENRA [Suspect]
     Active Substance: BENRALIZUMAB
     Indication: ASTHMA
     Dosage: 30MG/ML EVERY EIGHT WEEKS
     Route: 058
     Dates: start: 20180501, end: 20180605

REACTIONS (3)
  - Pneumonia pseudomonal [Fatal]
  - Pneumonia [Unknown]
  - Bacterial sepsis [Fatal]

NARRATIVE: CASE EVENT DATE: 20180702
